FAERS Safety Report 7306810-5 (Version None)
Quarter: 2011Q1

REPORT INFORMATION
  Report Type: 
  Country: None (occurrence: None)
  Receive Date: 20110223
  Receipt Date: 20110218
  Transmission Date: 20110831
  Serious: Yes (Hospitalization)
  Sender: FDA-Public Use
  Company Number: JP-BAYER-2011-013918

PATIENT
  Age: 57 Year
  Sex: Male

DRUGS (2)
  1. ADALAT CC [Suspect]
     Dosage: UNK
     Route: 048
     Dates: start: 20080401
  2. AZELNIDIPINE [Concomitant]
     Indication: ESSENTIAL HYPERTENSION
     Dosage: UNK
     Route: 048
     Dates: start: 20080401

REACTIONS (1)
  - ASCITES [None]
